FAERS Safety Report 14002601 (Version 2)
Quarter: 2017Q4

REPORT INFORMATION
  Report Type: Spontaneous
  Country: US (occurrence: US)
  Receive Date: 20170922
  Receipt Date: 20171013
  Transmission Date: 20180321
  Serious: No
  Sender: FDA-Public Use
  Company Number: US-STRONGBRIDGE BIOPHARMA-SR-KEV-2017-165

PATIENT
  Age: 60 Year
  Sex: Male

DRUGS (1)
  1. KEVEYIS [Suspect]
     Active Substance: DICHLORPHENAMIDE
     Indication: PRODUCT USED FOR UNKNOWN INDICATION
     Route: 048
     Dates: start: 20170824

REACTIONS (3)
  - Paraesthesia [Recovering/Resolving]
  - Nightmare [Recovering/Resolving]
  - Gout [Not Recovered/Not Resolved]

NARRATIVE: CASE EVENT DATE: 20170919
